FAERS Safety Report 7586454-0 (Version None)
Quarter: 2011Q3

REPORT INFORMATION
  Report Type: 
  Country: None (occurrence: None)
  Receive Date: 20110701
  Receipt Date: 20110628
  Transmission Date: 20111222
  Serious: Yes (Other)
  Sender: FDA-Public Use
  Company Number: D0071861A

PATIENT
  Age: 6 Year
  Sex: Female

DRUGS (1)
  1. ALBUTEROL SULFATE [Suspect]
     Route: 065

REACTIONS (3)
  - PALLOR [None]
  - LOSS OF CONSCIOUSNESS [None]
  - CYANOSIS [None]
